FAERS Safety Report 23363653 (Version 2)
Quarter: 2024Q1

REPORT INFORMATION
  Report Type: Report from Study
  Country: US (occurrence: US)
  Receive Date: 20240103
  Receipt Date: 20240105
  Transmission Date: 20240409
  Serious: Yes (Other)
  Sender: FDA-Public Use
  Company Number: US-ABBVIE-5566478

PATIENT
  Sex: Male

DRUGS (4)
  1. IMBRUVICA [Suspect]
     Active Substance: IBRUTINIB
     Indication: Chronic lymphocytic leukaemia
     Route: 048
     Dates: start: 202209
  2. IMBRUVICA [Suspect]
     Active Substance: IBRUTINIB
     Indication: Chronic lymphocytic leukaemia
     Dosage: FIRST ADMIN DATE: MORE THAN 8 YEARS AGO
     Route: 048
  3. IMBRUVICA [Suspect]
     Active Substance: IBRUTINIB
     Indication: Chronic lymphocytic leukaemia
     Dosage: LOWERED DOSE FOR FEW MONTHS
     Route: 048
  4. IMBRUVICA [Suspect]
     Active Substance: IBRUTINIB
     Indication: Chronic lymphocytic leukaemia
     Dosage: LOWEST DOSE?DOSE DURATION: ONE AND HALF YEAR
     Route: 048

REACTIONS (12)
  - Chronic lymphocytic leukaemia [Unknown]
  - Somnolence [Unknown]
  - Brain fog [Unknown]
  - White blood cell count increased [Unknown]
  - Prostatomegaly [Unknown]
  - Urinary tract infection [Recovered/Resolved]
  - Hypoaesthesia [Unknown]
  - Memory impairment [Unknown]
  - Cerebral disorder [Unknown]
  - Renal failure [Unknown]
  - Nephrolithiasis [Unknown]
  - Nocturia [Unknown]

NARRATIVE: CASE EVENT DATE: 20210101
